FAERS Safety Report 21932736 (Version 1)
Quarter: 2023Q1

REPORT INFORMATION
  Report Type: Spontaneous
  Country: GB (occurrence: GB)
  Receive Date: 20230131
  Receipt Date: 20230131
  Transmission Date: 20230418
  Serious: Yes (Hospitalization, Other)
  Sender: FDA-Public Use
  Company Number: GB-Stemline Therapeutics, Inc.-2023ST000059

PATIENT
  Age: 75 Year
  Sex: Male

DRUGS (3)
  1. ELZONRIS [Suspect]
     Active Substance: TAGRAXOFUSP-ERZS
     Indication: Product used for unknown indication
     Dosage: 2ND LINE SETTING
     Route: 042
  2. ELZONRIS [Suspect]
     Active Substance: TAGRAXOFUSP-ERZS
     Dosage: CYCLE 2
     Route: 042
  3. ELZONRIS [Suspect]
     Active Substance: TAGRAXOFUSP-ERZS
     Dosage: CYCLE 3
     Route: 042

REACTIONS (9)
  - Atypical pneumonia [Unknown]
  - Sepsis [Unknown]
  - Disease progression [Unknown]
  - Tumour lysis syndrome [Unknown]
  - Somnolence [Unknown]
  - Confusional state [Unknown]
  - Decubitus ulcer [Unknown]
  - Palliative care [Unknown]
  - Asthenia [Unknown]

NARRATIVE: CASE EVENT DATE: 20220501
